FAERS Safety Report 23086495 (Version 1)
Quarter: 2023Q4

REPORT INFORMATION
  Report Type: Spontaneous
  Country: US (occurrence: US)
  Receive Date: 20231019
  Receipt Date: 20231019
  Transmission Date: 20240110
  Serious: Yes (Life-Threatening, Hospitalization, Other)
  Sender: FDA-Public Use
  Company Number: US-MLMSERVICE-20231005-4591055-1

PATIENT
  Age: 20 Year
  Sex: Male

DRUGS (2)
  1. BUPIVACAINE HYDROCHLORIDE [Suspect]
     Active Substance: BUPIVACAINE HYDROCHLORIDE
     Indication: Nerve block
     Dosage: UNK
     Route: 065
  2. MEPIVACAINE [Suspect]
     Active Substance: MEPIVACAINE HYDROCHLORIDE
     Indication: Nerve block
     Dosage: UNK
     Route: 065

REACTIONS (6)
  - Cardiac arrest [Recovered/Resolved]
  - Ventricular fibrillation [Recovered/Resolved]
  - Seizure [Unknown]
  - Respiratory arrest [Recovered/Resolved]
  - Encephalopathy [Recovered/Resolved]
  - Local anaesthetic systemic toxicity [Recovered/Resolved]
